FAERS Safety Report 9806079 (Version 1)
Quarter: 2014Q1

REPORT INFORMATION
  Report Type: Spontaneous
  Country: US (occurrence: US)
  Receive Date: 20140109
  Receipt Date: 20140109
  Transmission Date: 20141002
  Serious: Yes (Hospitalization, Other)
  Sender: FDA-Public Use
  Company Number: US-GILEAD-2014-0091610

PATIENT
  Sex: Male

DRUGS (1)
  1. LETAIRIS [Suspect]
     Indication: PRODUCT USED FOR UNKNOWN INDICATION
     Dosage: 10 MG, QD
     Route: 048
     Dates: start: 20100921

REACTIONS (9)
  - Pneumonia [Unknown]
  - Mental status changes [Unknown]
  - Blood potassium decreased [Unknown]
  - Neoplasm malignant [Unknown]
  - Mental status changes [Unknown]
  - Lung carcinoma cell type unspecified stage IV [Unknown]
  - Hyperkalaemia [Unknown]
  - Bone cancer [Unknown]
  - Gastrointestinal carcinoma [Unknown]
